FAERS Safety Report 10145826 (Version 1)
Quarter: 2014Q2

REPORT INFORMATION
  Report Type: Spontaneous
  Country: US (occurrence: US)
  Receive Date: 20140501
  Receipt Date: 20140501
  Transmission Date: 20141212
  Serious: No
  Sender: FDA-Public Use
  Company Number: US-ABBVIE-14P-163-1199790-00

PATIENT
  Age: 62 Year
  Sex: Female
  Weight: 65.83 kg

DRUGS (2)
  1. CREON [Suspect]
     Indication: PANCREATITIS
  2. NEXIUM [Concomitant]
     Indication: OESOPHAGITIS

REACTIONS (1)
  - Oesophagitis [Not Recovered/Not Resolved]
